FAERS Safety Report 10538313 (Version 1)
Quarter: 2014Q4

REPORT INFORMATION
  Report Type: Spontaneous
  Country: CH (occurrence: None)
  Receive Date: 20141021
  Receipt Date: 20141021
  Transmission Date: 20150529
  Serious: Yes (Hospitalization)
  Sender: FDA-Public Use
  Company Number: 2014100031

PATIENT
  Age: 82 Year
  Sex: Female

DRUGS (13)
  1. ASPIRIN CARDIO 100 [Suspect]
     Active Substance: ASPIRIN
     Route: 048
  2. COAPROVEL [Suspect]
     Active Substance: HYDROCHLOROTHIAZIDE\IRBESARTAN
     Route: 048
  3. VI-DE 3 4500 IU (COLECALCIFEROL) [Concomitant]
  4. METFORMIN [Concomitant]
     Active Substance: METFORMIN HYDROCHLORIDE
  5. LANTUS 100 IU (INSULIN GLARGINE) [Concomitant]
  6. NITRODERM 25 MG (GLYCERYL TRINITRATE) [Concomitant]
  7. PLAVIX [Suspect]
     Active Substance: CLOPIDOGREL BISULFATE
     Route: 048
  8. PANTOZOL 20 MG (PANTOPRAZOLE SODIUM) [Concomitant]
  9. DISTRANEURIN (CLOMETHIAZOLE) [Concomitant]
  10. CARDURA 4.85 MG (DOXAZOSINMESILATE) [Concomitant]
  11. TOREM [Suspect]
     Active Substance: TORSEMIDE
     Route: 048
  12. NEBILET (NEBILET) [Concomitant]
  13. SERTRALINE [Concomitant]
     Active Substance: SERTRALINE HYDROCHLORIDE

REACTIONS (8)
  - Hypokalaemia [None]
  - Blood pressure systolic increased [None]
  - Pleural effusion [None]
  - Electrocardiogram T wave amplitude decreased [None]
  - Gastritis erosive [None]
  - Large intestine polyp [None]
  - Hypochromic anaemia [None]
  - Gastrointestinal haemorrhage [None]

NARRATIVE: CASE EVENT DATE: 20140901
